FAERS Safety Report 18436777 (Version 1)
Quarter: 2020Q4

REPORT INFORMATION
  Report Type: Spontaneous
  Country: JP (occurrence: JP)
  Receive Date: 20201028
  Receipt Date: 20201028
  Transmission Date: 20210114
  Serious: Yes (Other)
  Sender: FDA-Public Use
  Company Number: JP-TAKEDA-JP201903924

PATIENT

DRUGS (2)
  1. 5-AMINOSALICYLIC ACID [Concomitant]
     Active Substance: MESALAMINE
     Indication: PRODUCT USED FOR UNKNOWN INDICATION
  2. LIALDA [Suspect]
     Active Substance: MESALAMINE
     Indication: COLITIS ULCERATIVE
     Dosage: UNK
     Route: 048

REACTIONS (10)
  - Renal disorder [Unknown]
  - Drug ineffective [Unknown]
  - Pericarditis [Unknown]
  - Interstitial lung disease [Unknown]
  - Colitis ulcerative [Unknown]
  - Drug intolerance [Unknown]
  - Myocarditis [Unknown]
  - Amylase increased [Unknown]
  - Product residue present [Unknown]
  - Pleurisy [Unknown]
